FAERS Safety Report 8602492-0 (Version None)
Quarter: 2012Q3

REPORT INFORMATION
  Report Type: 
  Country: None (occurrence: None)
  Receive Date: 20120817
  Receipt Date: 20120807
  Transmission Date: 20120928
  Serious: Yes (Hospitalization, Other)
  Sender: FDA-Public Use
  Company Number: JP-NAPPMUNDI-MAG-2012-0002259

PATIENT
  Age: 62 Year
  Sex: Male

DRUGS (13)
  1. BUPRENORPHINE [Suspect]
     Dosage: 15 MCG, Q1H
     Route: 062
     Dates: start: 20120507, end: 20120514
  2. BUPRENORPHINE [Suspect]
     Dosage: 10 MCG, Q1H
     Route: 062
     Dates: start: 20120424, end: 20120506
  3. CARVEDILOL [Concomitant]
     Dosage: 10 MG, DAILY
     Route: 048
  4. DIART [Concomitant]
     Dosage: 60 MG, DAILY
     Route: 048
  5. BUPRENORPHINE [Suspect]
     Indication: PAIN
     Dosage: 10 MCG, Q1H
     Route: 062
     Dates: end: 20120705
  6. BUPRENORPHINE [Suspect]
     Dosage: 20 MCG, Q1H
     Route: 062
     Dates: start: 20120515, end: 20120522
  7. BUPRENORPHINE [Suspect]
     Dosage: 5 MCG, Q1H
     Route: 062
     Dates: start: 20120411, end: 20120423
  8. ALDACTONE [Concomitant]
     Dosage: 25 MG, DAILY
     Route: 048
  9. PRAVASTATIN [Suspect]
     Dosage: 10 MG, DAILY
     Route: 048
  10. BUPRENORPHINE [Suspect]
     Dosage: 10 MCG, Q1H
     Route: 062
     Dates: start: 20120605, end: 20120625
  11. LISINOPRIL [Concomitant]
     Dosage: 10 MG, DAILY
     Route: 048
  12. OMEPRAZOLE [Concomitant]
     Dosage: 10 MG, DAILY
     Route: 048
  13. LENDORMIN [Concomitant]
     Dosage: 0.25 MG, DAILY
     Route: 048

REACTIONS (2)
  - ARRHYTHMIA [None]
  - LOSS OF CONSCIOUSNESS [None]
